FAERS Safety Report 7238783-8 (Version None)
Quarter: 2011Q1

REPORT INFORMATION
  Report Type: 
  Country: None (occurrence: None)
  Receive Date: 20110121
  Receipt Date: 20110118
  Transmission Date: 20110831
  Serious: Yes (Hospitalization)
  Sender: FDA-Public Use
  Company Number: FR-PFIZER INC-2011011354

PATIENT
  Sex: Female
  Weight: 70 kg

DRUGS (13)
  1. FLAGYL [Suspect]
     Dosage: 500 MG, 1X/DAY
     Route: 048
     Dates: start: 20100401, end: 20100901
  2. PYOSTACINE [Concomitant]
     Dosage: UNK
     Route: 048
     Dates: start: 20100101
  3. NIZORAL [Concomitant]
     Dosage: UNK
     Dates: start: 20100401
  4. PROTOPIC [Concomitant]
     Dosage: UNK
     Dates: start: 20100101, end: 20100301
  5. DIPROSALIC [Concomitant]
     Dosage: UNK
     Dates: start: 20091101, end: 20100801
  6. CLONIDINE [Concomitant]
     Indication: FLUSHING
  7. CYPROTERONE [Concomitant]
     Dosage: 50 MG, 2X/DAY
     Dates: start: 20100101, end: 20100401
  8. TRIFLUCAN [Suspect]
     Dosage: 50 MG, 1X/DAY
     Route: 048
     Dates: start: 20100901, end: 20101101
  9. METRONIDAZOLE [Suspect]
     Dosage: 1 DF, 2X/DAY
     Route: 003
     Dates: start: 20100401, end: 20101101
  10. ECONAZOLE [Concomitant]
     Dosage: UNK
     Dates: start: 20100701
  11. NEXIUM [Concomitant]
     Dosage: UNK
     Dates: start: 20100901
  12. ADVIL [Concomitant]
     Dosage: UNK
     Dates: start: 20091101, end: 20100801
  13. SERTACONAZOLE [Concomitant]
     Dosage: UNK
     Dates: start: 20100701, end: 20100801

REACTIONS (1)
  - ACUTE GENERALISED EXANTHEMATOUS PUSTULOSIS [None]
